FAERS Safety Report 8745760 (Version 2)
Quarter: 2013Q4

REPORT INFORMATION
  Report Type: Spontaneous
  Country: DE (occurrence: DE)
  Receive Date: 20120827
  Receipt Date: 20131031
  Transmission Date: 20140711
  Serious: Yes (Other)
  Sender: FDA-Public Use
  Company Number: DE-009507513-2012SP036079

PATIENT
  Sex: Female

DRUGS (4)
  1. VICTRELIS [Suspect]
     Indication: HEPATITIS
     Dosage: 200 MG, QD
     Dates: start: 20120109, end: 201205
  2. PEGINTRON [Suspect]
     Indication: HEPATITIS
     Dosage: UNK
     Dates: end: 2012
  3. REBETOL [Suspect]
     Dosage: UNK
     Dates: end: 2012
  4. LEXOTANIL [Concomitant]

REACTIONS (2)
  - Abortion induced [Unknown]
  - Maternal exposure before pregnancy [Unknown]
